FAERS Safety Report 4357391-X (Version None)
Quarter: 2004Q2

REPORT INFORMATION
  Report Type: 
  Country: None (occurrence: None)
  Receive Date: 20040507
  Receipt Date: 20040422
  Transmission Date: 20050107
  Serious: Yes (Congenital Anomaly, Other)
  Sender: FDA-Public Use
  Company Number: 2004-DE-02403UP

PATIENT
  Age: 6 Week
  Sex: Male

DRUGS (4)
  1. MIRAPEXIN (TA) [Suspect]
     Indication: PARKINSON'S DISEASE
     Dosage: 0.28 MG (NR), PO
     Route: 048
     Dates: start: 20030212
  2. LEVODOPA BENSERAZIDE HYDROCHLORIDE (NR) [Suspect]
     Indication: PARKINSON'S DISEASE
     Dosage: 25 MG (NR), PO
     Route: 048
     Dates: start: 19960401
  3. BENZHEXOL (TRIHEXYPHENIDYL) (NR) [Suspect]
     Indication: PARKINSONISM
     Dosage: 14 MG (SEE TEXT, 2 IN 1 D)
     Dates: start: 19960925
  4. PERGOLIDE (PERGOLIDE) (NR) [Suspect]
     Indication: PARKINSON'S DISEASE
     Dosage: 300 MCG (NR)
     Dates: start: 19970312, end: 20021101

REACTIONS (13)
  - ACQUIRED MACROCEPHALY [None]
  - APGAR SCORE LOW [None]
  - CAESAREAN SECTION [None]
  - CONGENITAL PYLORIC STENOSIS [None]
  - DEVELOPMENTAL DELAY [None]
  - DYSKINESIA [None]
  - FACIAL DYSMORPHISM [None]
  - FAILURE TO THRIVE [None]
  - MATERNAL DRUGS AFFECTING FOETUS [None]
  - NEONATAL DISORDER [None]
  - PNEUMOTHORAX [None]
  - SMALL FOR DATES BABY [None]
  - TRANSIENT TACHYPNOEA OF THE NEWBORN [None]
